FAERS Safety Report 5782541-8 (Version None)
Quarter: 2008Q2

REPORT INFORMATION
  Report Type: 
  Country: None (occurrence: None)
  Receive Date: 20080623
  Receipt Date: 20080612
  Transmission Date: 20081010
  Serious: Yes (Other)
  Sender: FDA-Public Use
  Company Number: US-PFIZER INC-2008049508

PATIENT
  Sex: Female

DRUGS (1)
  1. GLUCOTROL [Suspect]

REACTIONS (1)
  - BLOOD GLUCOSE INCREASED [None]
